FAERS Safety Report 25746476 (Version 1)
Quarter: 2025Q3

REPORT INFORMATION
  Report Type: Spontaneous
  Country: EU (occurrence: EU)
  Receive Date: 20250901
  Receipt Date: 20250901
  Transmission Date: 20251021
  Serious: Yes (Other)
  Sender: SANDOZ
  Company Number: None

PATIENT
  Age: 12 Year
  Sex: Male
  Weight: 41.5 kg

DRUGS (4)
  1. ACYCLOVIR [Suspect]
     Active Substance: ACYCLOVIR
     Indication: Herpes zoster
     Dosage: 830 MG, Q8H, START DATE-22-JUL-2025
     Route: 042
     Dates: end: 20250717
  2. RUXOLITINIB [Suspect]
     Active Substance: RUXOLITINIB
     Indication: Still^s disease
     Dosage: 15 MG, Q8H
     Route: 048
     Dates: start: 20250522
  3. ILARIS [Concomitant]
     Active Substance: CANAKINUMAB
     Indication: Still^s disease
     Dosage: 250 MG, Q4W
     Route: 058
  4. Solupred [Concomitant]
     Indication: Still^s disease
     Dosage: 20 MG, Q24H
     Route: 048
     Dates: start: 20230610

REACTIONS (1)
  - Superficial vein thrombosis [Unknown]

NARRATIVE: CASE EVENT DATE: 20250715
